FAERS Safety Report 6047144-9 (Version None)
Quarter: 2009Q1

REPORT INFORMATION
  Report Type: 
  Country: None (occurrence: None)
  Receive Date: 20090122
  Receipt Date: 20090114
  Transmission Date: 20090719
  Serious: Yes (Hospitalization, Other)
  Sender: FDA-Public Use
  Company Number: PHHY2008JP13493

PATIENT
  Sex: Female

DRUGS (9)
  1. TEGRETOL [Suspect]
     Indication: MANIA
     Dosage: 200 MG, BID
     Route: 048
     Dates: start: 20061118, end: 20061205
  2. SERTRALINE HYDROCHLORIDE [Suspect]
     Indication: DEPRESSION
     Dosage: 25 MG, QD
     Route: 048
     Dates: start: 20060911, end: 20061205
  3. SEPAZON [Suspect]
     Indication: DEPRESSION
     Dosage: 1 MG, QD
     Route: 048
     Dates: start: 20061107
  4. VOLTAREN TAPE (NCH) [Suspect]
     Indication: ANALGESIA
     Dosage: 2 DF, QD
     Route: 062
     Dates: start: 20060901
  5. AMOXAN [Suspect]
     Indication: DEPRESSION
     Dosage: 30 MG, QD
     Route: 048
     Dates: start: 20061118, end: 20061205
  6. DESYREL [Suspect]
     Indication: INSOMNIA
     Dosage: 75 MG, QD
     Route: 048
     Dates: start: 20061128, end: 20061205
  7. VEGETAMIN [Suspect]
     Indication: INSOMNIA
     Dosage: 1 DF, QD
     Route: 048
     Dates: start: 20060523, end: 20061205
  8. MEILAX [Suspect]
     Indication: ANXIETY
     Dosage: 1 MG, QD
     Route: 048
     Dates: start: 20060418, end: 20061205
  9. MUCODYNE [Suspect]
     Indication: THIRST
     Dosage: 4.5 G, QD
     Route: 048
     Dates: start: 20060529, end: 20061205

REACTIONS (7)
  - GENITAL EROSION [None]
  - OCULAR HYPERAEMIA [None]
  - OCULOMUCOCUTANEOUS SYNDROME [None]
  - ORAL MUCOSA EROSION [None]
  - ORAL MUCOSAL EXFOLIATION [None]
  - PYREXIA [None]
  - RASH [None]
